FAERS Safety Report 4580016-5 (Version None)
Quarter: 2005Q1

REPORT INFORMATION
  Report Type: 
  Country: None (occurrence: None)
  Receive Date: 20050214
  Receipt Date: 20050113
  Transmission Date: 20050727
  Serious: Yes (Life-Threatening, Hospitalization)
  Sender: FDA-Public Use
  Company Number: JP-MERCK-0501USA02641

PATIENT
  Age: 76 Year
  Sex: Female
  Weight: 34 kg

DRUGS (6)
  1. FOSAMAX [Suspect]
     Indication: OSTEOPOROSIS
     Route: 048
     Dates: start: 20040409, end: 20040801
  2. THYRADIN [Concomitant]
     Indication: AUTOIMMUNE THYROIDITIS
     Route: 048
     Dates: start: 19670522
  3. ALFAROL [Concomitant]
     Indication: OSTEOPOROSIS
     Route: 048
     Dates: start: 19931022
  4. CYANOCOBALAMIN [Concomitant]
     Indication: NEUROPATHY PERIPHERAL
     Route: 048
     Dates: start: 19990101
  5. CHOLECALCIFEROL [Concomitant]
     Route: 065
  6. [COMPOSITION UNSPECIFIED] [Concomitant]
     Route: 065
     Dates: start: 20050101

REACTIONS (15)
  - ABDOMINAL DISTENSION [None]
  - CONSTIPATION [None]
  - DECREASED APPETITE [None]
  - DRY MOUTH [None]
  - FLATULENCE [None]
  - GASTRITIS [None]
  - HYPOAESTHESIA [None]
  - LARGE INTESTINE CARCINOMA [None]
  - METASTASES TO PERITONEUM [None]
  - MUSCLE STRAIN [None]
  - MUSCULOSKELETAL STIFFNESS [None]
  - STOMACH DISCOMFORT [None]
  - TINNITUS [None]
  - TONGUE DISORDER [None]
  - VOMITING [None]
